FAERS Safety Report 5078564-7 (Version None)
Quarter: 2006Q3

REPORT INFORMATION
  Report Type: 
  Country: None (occurrence: None)
  Receive Date: 20060811
  Receipt Date: 20050927
  Transmission Date: 20061208
  Serious: Yes (Hospitalization, Other)
  Sender: FDA-Public Use
  Company Number: US-MERCK-0509USA04014

PATIENT
  Age: 63 Year
  Sex: Female

DRUGS (9)
  1. FOSAMAX [Suspect]
     Route: 048
     Dates: start: 19980709, end: 20010509
  2. FOSAMAX [Suspect]
     Route: 048
     Dates: start: 20010509
  3. DELTASONE [Concomitant]
     Route: 065
  4. RELAFEN [Concomitant]
     Route: 065
  5. DARVOCET [Concomitant]
     Route: 065
  6. LASIX [Concomitant]
     Route: 065
     Dates: end: 20010201
  7. LASIX [Concomitant]
     Route: 065
     Dates: start: 20010201
  8. POTASSIUM CHLORIDE [Concomitant]
     Route: 065
     Dates: end: 20010201
  9. POTASSIUM CHLORIDE [Concomitant]
     Route: 065
     Dates: start: 20010201

REACTIONS (10)
  - ASTHENIA [None]
  - DIPLOPIA [None]
  - GASTROOESOPHAGEAL REFLUX DISEASE [None]
  - IMPAIRED HEALING [None]
  - JAW FRACTURE [None]
  - NAUSEA [None]
  - OSTEOMYELITIS [None]
  - OSTEONECROSIS [None]
  - RASH [None]
  - SPINAL DISORDER [None]
